FAERS Safety Report 18530703 (Version 1)
Quarter: 2020Q4

REPORT INFORMATION
  Report Type: Spontaneous
  Country: DE (occurrence: DE)
  Receive Date: 20201121
  Receipt Date: 20201121
  Transmission Date: 20210114
  Serious: Yes (Hospitalization)
  Sender: FDA-Public Use
  Company Number: NVSC2020DE305644

PATIENT
  Age: 85 Year
  Sex: Female
  Weight: 61 kg

DRUGS (3)
  1. CYCLOPHOSPHAMID [Suspect]
     Active Substance: CYCLOPHOSPHAMIDE
     Indication: PLASMA CELL MYELOMA
     Dosage: 50 MG (DATE OF THE LAST DOSAGE BEFORE EVENT ONSET WAS 07 OCT 2020)
     Route: 065
     Dates: start: 20200225
  2. DEXAMETHASONE. [Suspect]
     Active Substance: DEXAMETHASONE
     Indication: PLASMA CELL MYELOMA
     Dosage: 8 MG (DATE OF THE LAST DOSAGE BEFORE EVENT ONSET WAS 30 SEP 2020)
     Route: 065
     Dates: start: 20200225
  3. VELCADE [Suspect]
     Active Substance: BORTEZOMIB
     Indication: PLASMA CELL MYELOMA
     Dosage: 1.74 MG (DATE OF THE LAST DOSAGE BEFORE EVENT ONSET WAS 29 SEP 2020)
     Route: 065
     Dates: start: 20200225

REACTIONS (1)
  - Sepsis [Recovering/Resolving]

NARRATIVE: CASE EVENT DATE: 20201008
